FAERS Safety Report 13537687 (Version 1)
Quarter: 2017Q2

REPORT INFORMATION
  Report Type: Report from Study
  Country: US (occurrence: US)
  Receive Date: 20170511
  Receipt Date: 20170511
  Transmission Date: 20170830
  Serious: Yes (Hospitalization)
  Sender: FDA-Public Use
  Company Number: US-ACTELION-A-NJ2017-153446

PATIENT
  Age: 64 Year
  Sex: Male

DRUGS (12)
  1. ENALAPRIL [Concomitant]
     Active Substance: ENALAPRIL
  2. COREG [Concomitant]
     Active Substance: CARVEDILOL
  3. DIGOXIN. [Concomitant]
     Active Substance: DIGOXIN
  4. IRON [Concomitant]
     Active Substance: IRON
  5. TRACLEER [Suspect]
     Active Substance: BOSENTAN
     Indication: PULMONARY ARTERIAL HYPERTENSION
     Dosage: 125 MG, BID
     Route: 048
     Dates: start: 20110425
  6. VICTOZA [Concomitant]
     Active Substance: LIRAGLUTIDE
  7. REVATIO [Concomitant]
     Active Substance: SILDENAFIL CITRATE
  8. FUROSEMIDE. [Concomitant]
     Active Substance: FUROSEMIDE
  9. ASPIRIN. [Concomitant]
     Active Substance: ASPIRIN
  10. XARELTO [Concomitant]
     Active Substance: RIVAROXABAN
  11. ALLOPURINOL. [Concomitant]
     Active Substance: ALLOPURINOL
  12. BYETTA [Concomitant]
     Active Substance: EXENATIDE

REACTIONS (3)
  - Urinary tract infection [Recovered/Resolved]
  - Pneumonia [Recovered/Resolved]
  - Urinary incontinence [Recovered/Resolved]
